FAERS Safety Report 4429724-7 (Version None)
Quarter: 2004Q3

REPORT INFORMATION
  Report Type: 
  Country: None (occurrence: None)
  Receive Date: 20040820
  Receipt Date: 20040813
  Transmission Date: 20050211
  Serious: Yes (Hospitalization)
  Sender: FDA-Public Use
  Company Number: FI-JNJFOC-20040804004

PATIENT
  Age: 17 Year
  Sex: Female
  Weight: 43 kg

DRUGS (7)
  1. REMICADE [Suspect]
     Route: 042
  2. METHOTREXATE [Concomitant]
     Route: 049
  3. PLAQUENIL [Concomitant]
  4. ARAVA [Concomitant]
  5. FOLVITE [Concomitant]
     Route: 049
  6. KALCIPOS D [Concomitant]
     Route: 049
  7. ANTI-INFLAMMATORY ANALGESIC [Concomitant]

REACTIONS (3)
  - DYSPNOEA [None]
  - ERYTHEMA [None]
  - FEELING HOT [None]
